FAERS Safety Report 6388778-1 (Version None)
Quarter: 2009Q4

REPORT INFORMATION
  Report Type: 
  Country: None (occurrence: None)
  Receive Date: 20091005
  Receipt Date: 20090924
  Transmission Date: 20100525
  Serious: Yes (Other)
  Sender: FDA-Public Use
  Company Number: US-BAXTER-2009BH013355

PATIENT
  Age: 46 Year
  Sex: Male

DRUGS (26)
  1. DIANEAL [Suspect]
     Indication: PERITONEAL DIALYSIS
     Route: 033
  2. EXTRANEAL [Suspect]
     Indication: PERITONEAL DIALYSIS
     Route: 033
     Dates: start: 20090908, end: 20090909
  3. EXTRANEAL [Suspect]
     Route: 033
     Dates: start: 20090810, end: 20090826
  4. PREDNISONE TAB [Suspect]
     Indication: GOUT
     Route: 048
     Dates: start: 20090828, end: 20090911
  5. PREDNISONE TAB [Suspect]
     Route: 048
     Dates: start: 20090801, end: 20090825
  6. GLIPIZIDE [Suspect]
     Indication: TYPE 2 DIABETES MELLITUS
     Route: 048
     Dates: start: 20090810, end: 20090813
  7. GLIPIZIDE [Suspect]
     Route: 048
     Dates: start: 20090813, end: 20090826
  8. GLIPIZIDE [Suspect]
     Route: 048
     Dates: start: 20090922
  9. PROZAC [Suspect]
     Indication: DRUG USE FOR UNKNOWN INDICATION
     Dates: start: 20090813, end: 20090826
  10. ALLOPURINOL [Concomitant]
     Indication: DRUG USE FOR UNKNOWN INDICATION
     Route: 065
  11. CALCITRIOL [Concomitant]
     Indication: DRUG USE FOR UNKNOWN INDICATION
     Route: 065
  12. CALCITRIOL [Concomitant]
     Route: 065
  13. CLONIDINE [Concomitant]
     Indication: DRUG USE FOR UNKNOWN INDICATION
     Route: 065
  14. HEPATITIS B VACCINE [Concomitant]
     Indication: HEPATITIS B IMMUNISATION
     Route: 065
  15. EPOGEN [Concomitant]
     Indication: DRUG USE FOR UNKNOWN INDICATION
     Route: 065
  16. LASIX [Concomitant]
     Indication: DRUG USE FOR UNKNOWN INDICATION
     Route: 065
  17. VICODIN [Concomitant]
     Indication: DRUG USE FOR UNKNOWN INDICATION
     Route: 065
  18. LABETALOL HCL [Concomitant]
     Indication: DRUG USE FOR UNKNOWN INDICATION
     Route: 065
  19. LISINOPRIL [Concomitant]
     Indication: DRUG USE FOR UNKNOWN INDICATION
     Route: 065
  20. LOVASTATIN [Concomitant]
     Indication: DRUG USE FOR UNKNOWN INDICATION
     Route: 048
  21. MIRALAX [Concomitant]
     Indication: DRUG USE FOR UNKNOWN INDICATION
     Route: 048
  22. NIFEDIPINE [Concomitant]
     Indication: DRUG USE FOR UNKNOWN INDICATION
     Route: 048
  23. OMEPRAZOLE [Concomitant]
     Indication: DRUG USE FOR UNKNOWN INDICATION
     Route: 048
  24. SEVELAMER [Concomitant]
     Indication: DRUG USE FOR UNKNOWN INDICATION
     Route: 048
  25. SEVELAMER [Concomitant]
     Route: 048
  26. RESTYLANE [Concomitant]
     Indication: DRUG USE FOR UNKNOWN INDICATION
     Route: 065

REACTIONS (6)
  - BURNING SENSATION [None]
  - GOUT [None]
  - PRURITUS [None]
  - RASH MACULAR [None]
  - SKIN EXFOLIATION [None]
  - TYPE 2 DIABETES MELLITUS [None]
